FAERS Safety Report 22072619 (Version 1)
Quarter: 2023Q1

REPORT INFORMATION
  Report Type: Spontaneous
  Country: US (occurrence: US)
  Receive Date: 20230308
  Receipt Date: 20230308
  Transmission Date: 20230418
  Serious: No
  Sender: FDA-Public Use
  Company Number: US-BRISTOL-MYERS SQUIBB COMPANY-2023-029299

PATIENT
  Age: 69 Year
  Sex: Female

DRUGS (1)
  1. ELIQUIS [Suspect]
     Active Substance: APIXABAN
     Indication: Portal vein thrombosis
     Dosage: DOSE : ONE;    ? FREQ : TWICE A DAY

REACTIONS (2)
  - Prescription drug used without a prescription [Unknown]
  - Off label use [Unknown]
